FAERS Safety Report 11824370 (Version 1)
Quarter: 2015Q4

REPORT INFORMATION
  Report Type: Spontaneous
  Country: US (occurrence: US)
  Receive Date: 20151210
  Receipt Date: 20151210
  Transmission Date: 20160305
  Serious: Yes (Other)
  Sender: FDA-Public Use
  Company Number: US-PURDUE PHARMA-USA-2015-0127835

PATIENT
  Sex: Male

DRUGS (3)
  1. NORCO [Concomitant]
     Active Substance: ACETAMINOPHEN\HYDROCODONE BITARTRATE
     Indication: BREAKTHROUGH PAIN
     Route: 048
  2. METOPROLOL [Concomitant]
     Active Substance: METOPROLOL
     Indication: HYPERTENSION
     Route: 048
  3. MS CONTIN [Suspect]
     Active Substance: MORPHINE SULFATE
     Indication: PAIN
     Route: 048

REACTIONS (9)
  - Flushing [Unknown]
  - Urticaria [Unknown]
  - Dyspnoea [Unknown]
  - Hypertension [Unknown]
  - Spinal fusion surgery [Unknown]
  - Cardiac disorder [Unknown]
  - Joint injury [Unknown]
  - Mass [Unknown]
  - Knee operation [Unknown]
